FAERS Safety Report 8862092 (Version 1)
Quarter: 2012Q4

REPORT INFORMATION
  Report Type: 
  Country: US (occurrence: US)
  Receive Date: 20121026
  Receipt Date: 20121026
  Transmission Date: 20130627
  Serious: Yes (Hospitalization)
  Sender: FDA-Public Use
  Company Number: US-BAYER-2012-110047

PATIENT
  Age: 32 Year
  Sex: Female
  Weight: 59.86 kg

DRUGS (1)
  1. YAZ [Suspect]

REACTIONS (1)
  - Deep vein thrombosis [Recovered/Resolved]
